FAERS Safety Report 6471270-3 (Version None)
Quarter: 2009Q4

REPORT INFORMATION
  Report Type: 
  Country: None (occurrence: None)
  Receive Date: 20091201
  Receipt Date: 20091120
  Transmission Date: 20100525
  Serious: Yes (Life-Threatening, Other)
  Sender: FDA-Public Use
  Company Number: 008104

PATIENT
  Age: 68 Year
  Sex: Male

DRUGS (2)
  1. BUSULFEX [Suspect]
     Indication: STEM CELL TRANSPLANT
     Dosage: 13 MG, DAILY DOSE, INTRAVENOUS
     Route: 042
     Dates: start: 20091111, end: 20091114
  2. CYTOXAN [Concomitant]

REACTIONS (6)
  - CARDIAC DISORDER [None]
  - CHEST PAIN [None]
  - HYPERHIDROSIS [None]
  - PULMONARY OEDEMA [None]
  - RENAL FAILURE ACUTE [None]
  - SHOCK [None]
